FAERS Safety Report 9149397 (Version 5)
Quarter: 2013Q4

REPORT INFORMATION
  Report Type: Spontaneous
  Country: US (occurrence: US)
  Receive Date: 20130308
  Receipt Date: 20131004
  Transmission Date: 20140711
  Serious: Yes (Hospitalization, Other)
  Sender: FDA-Public Use
  Company Number: US-PFIZER INC-2013077374

PATIENT
  Age: 65 Year
  Sex: Male
  Weight: 75 kg

DRUGS (12)
  1. SUTENT [Suspect]
     Indication: METASTATIC RENAL CELL CARCINOMA
     Dosage: 50 MG, CYCLIC (2 WEEKS ON AND 1 WEEK OFF)
     Dates: start: 20121229, end: 20130417
  2. SUTENT [Suspect]
     Dosage: 37.5 MG, UNK
  3. SUTENT [Suspect]
     Dosage: 25 MG, 1X/DAY
     Route: 048
  4. EFFEXOR [Concomitant]
     Dosage: 75 MG, BEDTIME
  5. EFFEXOR [Concomitant]
     Dosage: 150 MG, 1X/DAY
  6. DECADRON [Concomitant]
     Dosage: 1 MG, 2X/DAY
  7. DECADRON [Concomitant]
     Dosage: 2 MG, 1X/DAY
  8. FLOMAX [Concomitant]
     Dosage: 0.4 MG, BEDTIME (Q.P.M)
     Route: 048
  9. ASPIRIN [Concomitant]
     Dosage: 81 MG, 1X/DAY
  10. WARFARIN [Concomitant]
     Dosage: 5 MG, 1X/DAY
  11. PRILOSEC [Concomitant]
     Dosage: 20 MG, 1X/DAY
  12. PROTONIX [Concomitant]
     Dosage: 40 MG, 1X/DAY
     Route: 048

REACTIONS (33)
  - Pleural effusion [Unknown]
  - Dyspnoea [Not Recovered/Not Resolved]
  - Nephrolithiasis [Unknown]
  - Flank pain [Unknown]
  - Hydronephrosis [Unknown]
  - Pneumonia [Unknown]
  - Renal failure chronic [Unknown]
  - Renal failure acute [Unknown]
  - Febrile neutropenia [Recovered/Resolved]
  - Malaise [Unknown]
  - Nausea [Unknown]
  - Decreased appetite [Unknown]
  - Dysuria [Unknown]
  - Fatigue [Unknown]
  - Ulcer [Unknown]
  - Convulsion [Unknown]
  - Leukopenia [Unknown]
  - Oral discomfort [Recovering/Resolving]
  - Glossodynia [Unknown]
  - Disease progression [Unknown]
  - Metastatic renal cell carcinoma [Unknown]
  - Headache [Unknown]
  - Abdominal pain upper [Unknown]
  - Muscle fatigue [Unknown]
  - Dizziness [Unknown]
  - Diarrhoea [Recovered/Resolved]
  - Chills [Unknown]
  - Anaemia [Unknown]
  - Muscular weakness [Unknown]
  - Haematocrit abnormal [Unknown]
  - Emotional disorder [Unknown]
  - Tearfulness [Unknown]
  - Hypotension [Unknown]
